FAERS Safety Report 7485939-5 (Version None)
Quarter: 2011Q2

REPORT INFORMATION
  Report Type: 
  Country: None (occurrence: None)
  Receive Date: 20110517
  Receipt Date: 20110216
  Transmission Date: 20111010
  Serious: Yes (Other)
  Sender: FDA-Public Use
  Company Number: US-BAYER-2011-015467

PATIENT
  Age: 68 Year
  Sex: Male

DRUGS (2)
  1. NIASPAN [Concomitant]
     Dosage: UNK
     Dates: start: 20101231
  2. LEVITRA [Suspect]
     Indication: PRODUCT USED FOR UNKNOWN INDICATION
     Dosage: 20 MG, ONCE
     Route: 048
     Dates: start: 20101231

REACTIONS (1)
  - LOSS OF CONSCIOUSNESS [None]
